FAERS Safety Report 9891930 (Version 3)
Quarter: 2014Q1

REPORT INFORMATION
  Report Type: Report from Study
  Country: BR (occurrence: BR)
  Receive Date: 20140212
  Receipt Date: 20140226
  Transmission Date: 20141002
  Serious: Yes (Hospitalization)
  Sender: FDA-Public Use
  Company Number: BR-GLAXOSMITHKLINE-A1060320A

PATIENT
  Age: 18 Year
  Sex: Female
  Weight: 59.5 kg

DRUGS (6)
  1. BELIMUMAB [Suspect]
     Indication: SYSTEMIC LUPUS ERYTHEMATOSUS
     Dosage: 200MGML WEEKLY
     Route: 058
     Dates: start: 20131030
  2. AZATHIOPRINE [Concomitant]
     Dosage: 150MG PER DAY
     Route: 048
  3. METHOTREXATE [Concomitant]
     Dosage: 15MG WEEKLY
     Route: 048
  4. PREDNISONE [Concomitant]
     Dosage: 5MG TWICE PER DAY
     Route: 048
  5. CYCLOPHOSPHAMIDE [Concomitant]
     Route: 042
     Dates: start: 20140211
  6. METHYLPREDNISOLONE [Concomitant]
     Indication: SYSTEMIC LUPUS ERYTHEMATOSUS
     Route: 042
     Dates: start: 20140208, end: 20140210

REACTIONS (1)
  - Neuropsychiatric lupus [Recovered/Resolved]
